FAERS Safety Report 9452590 (Version 2)
Quarter: 2013Q3

REPORT INFORMATION
  Report Type: Spontaneous
  Country: US (occurrence: US)
  Receive Date: 20130812
  Receipt Date: 20130909
  Transmission Date: 20140515
  Serious: No
  Sender: FDA-Public Use
  Company Number: US-PFIZER INC-2013232157

PATIENT
  Age: 5 Year
  Sex: Male
  Weight: 31.7 kg

DRUGS (3)
  1. QUILLIVANT XR [Suspect]
     Indication: ATTENTION DEFICIT/HYPERACTIVITY DISORDER
     Dosage: 12 ML (60 MG) DAILY
     Dates: start: 20130410, end: 201308
  2. STRATTERA [Concomitant]
     Dosage: 60 MG, 2X/DAY
  3. RISPERIDONE [Concomitant]
     Dosage: 2 MG, DAILY

REACTIONS (2)
  - Drug effect incomplete [Unknown]
  - Off label use [Unknown]
